FAERS Safety Report 11045493 (Version 2)
Quarter: 2015Q2

REPORT INFORMATION
  Report Type: Report from Study
  Country: CA (occurrence: CA)
  Receive Date: 20150417
  Receipt Date: 20150504
  Transmission Date: 20150821
  Serious: Yes (Other)
  Sender: FDA-Public Use
  Company Number: CA-ABBVIE-14P-028-1237179-00

PATIENT
  Sex: Male
  Weight: 61.29 kg

DRUGS (4)
  1. HUMIRA [Suspect]
     Active Substance: ADALIMUMAB
     Indication: CROHN^S DISEASE
     Route: 058
     Dates: start: 201003, end: 2015
  2. HUMIRA [Suspect]
     Active Substance: ADALIMUMAB
     Route: 058
     Dates: start: 20150211
  3. PURINETHOL [Suspect]
     Active Substance: MERCAPTOPURINE
     Route: 065
  4. PURINETHOL [Suspect]
     Active Substance: MERCAPTOPURINE
     Indication: CROHN^S DISEASE
     Route: 065

REACTIONS (7)
  - Haemoglobin decreased [Unknown]
  - Nephrolithiasis [Recovered/Resolved]
  - Anaemia [Recovered/Resolved]
  - Blood iron decreased [Unknown]
  - Intestinal mucosal hypertrophy [Unknown]
  - Diarrhoea [Recovered/Resolved]
  - Anorectal disorder [Unknown]

NARRATIVE: CASE EVENT DATE: 2014
